FAERS Safety Report 13720563 (Version 3)
Quarter: 2017Q3

REPORT INFORMATION
  Report Type: Report from Study
  Country: KR (occurrence: KR)
  Receive Date: 20170706
  Receipt Date: 20170717
  Transmission Date: 20171127
  Serious: Yes (Hospitalization)
  Sender: FDA-Public Use
  Company Number: KR-AMGEN-KORSL2017101329

PATIENT
  Age: 77 Year
  Sex: Female

DRUGS (1)
  1. KYPROLIS [Suspect]
     Active Substance: CARFILZOMIB
     Indication: PLASMA CELL MYELOMA
     Dosage: UNK
     Route: 065

REACTIONS (4)
  - Liver function test increased [Recovered/Resolved]
  - Abdominal pain [Unknown]
  - Diarrhoea [Not Recovered/Not Resolved]
  - Asthenia [Not Recovered/Not Resolved]

NARRATIVE: CASE EVENT DATE: 2017
